FAERS Safety Report 9851127 (Version 1)
Quarter: 2014Q1

REPORT INFORMATION
  Report Type: Spontaneous
  Country: IE (occurrence: IE)
  Receive Date: 20140128
  Receipt Date: 20140128
  Transmission Date: 20141002
  Serious: Yes (Other)
  Sender: FDA-Public Use
  Company Number: US-ASTRAZENECA-2014SE05519

PATIENT
  Sex: Female

DRUGS (4)
  1. PALIVIZUMAB [Suspect]
     Indication: PREMATURE BABY
     Route: 030
     Dates: start: 20131219
  2. ZANTAC [Concomitant]
     Indication: PRODUCT USED FOR UNKNOWN INDICATION
  3. GALFER [Concomitant]
     Indication: PRODUCT USED FOR UNKNOWN INDICATION
  4. ABIDEC [Concomitant]
     Indication: PRODUCT USED FOR UNKNOWN INDICATION

REACTIONS (1)
  - Umbilical hernia [Unknown]
